FAERS Safety Report 19479110 (Version 3)
Quarter: 2021Q3

REPORT INFORMATION
  Report Type: Spontaneous
  Country: US (occurrence: US)
  Receive Date: 20210701
  Receipt Date: 20210815
  Transmission Date: 20211014
  Serious: No
  Sender: FDA-Public Use
  Company Number: US-JNJFOC-20210648933

PATIENT
  Sex: Male

DRUGS (1)
  1. UPTRAVI [Suspect]
     Active Substance: SELEXIPAG
     Indication: PRODUCT USED FOR UNKNOWN INDICATION
     Dosage: 600 MCG
     Route: 065
     Dates: start: 20210620, end: 20210620

REACTIONS (3)
  - Dizziness [Unknown]
  - Accidental exposure to product [Unknown]
  - Abdominal discomfort [Unknown]
